FAERS Safety Report 11835756 (Version 1)
Quarter: 2015Q4

REPORT INFORMATION
  Report Type: Spontaneous
  Country: GB (occurrence: GB)
  Receive Date: 20151215
  Receipt Date: 20151215
  Transmission Date: 20160305
  Serious: Yes (Other)
  Sender: FDA-Public Use
  Company Number: GB-WATSON-2015-27030

PATIENT
  Age: 15 Year
  Sex: Female

DRUGS (2)
  1. FLUOXETINE [Suspect]
     Active Substance: FLUOXETINE HYDROCHLORIDE
     Indication: DEPRESSION
     Dosage: 20 MG, DAILY
     Route: 065
  2. LANREOTIDE [Concomitant]
     Active Substance: LANREOTIDE
     Indication: HYPERINSULINISM
     Route: 058

REACTIONS (2)
  - Disease recurrence [Recovered/Resolved]
  - Hypoglycaemia [Recovered/Resolved]
